FAERS Safety Report 5936110-7 (Version None)
Quarter: 2008Q4

REPORT INFORMATION
  Report Type: 
  Country: None (occurrence: None)
  Receive Date: 20081028
  Receipt Date: 20071128
  Transmission Date: 20090506
  Serious: Yes (Death)
  Sender: FDA-Public Use
  Company Number: 2007-168324-NL

PATIENT
  Age: 48 Year
  Sex: Male

DRUGS (10)
  1. DANAPAROID SODIUM [Suspect]
     Indication: THROMBOCYTOPENIA
     Dosage: SUBCUTANEOUS
     Route: 058
     Dates: start: 20071008, end: 20071010
  2. FONDAPARINUX SODIUM [Suspect]
     Dosage: SUBCUTANEOUS
     Route: 058
  3. HEPARIN [Suspect]
     Indication: DIALYSIS
     Dosage: DF
     Dates: start: 20071006, end: 20071008
  4. FUROSEMIDE [Suspect]
     Dosage: DF
     Dates: end: 20071010
  5. MIDAZOLAM HYDROCHLORIDE [Suspect]
     Dosage: DF
     Dates: end: 20071010
  6. REMIFENTANIL HYDROCHLORIDE [Suspect]
     Dosage: DF
     Dates: end: 20071010
  7. OMEPRAZOLE [Suspect]
     Dosage: DF
     Dates: end: 20071009
  8. NICARDIPINE HYDROCHLORIDE [Suspect]
     Dosage: DF
     Dates: end: 20071009
  9. CEFOTAXIME SODIUM [Suspect]
     Dosage: DF
     Dates: end: 20071008
  10. FLUMAZENIL [Suspect]
     Dosage: DF
     Dates: start: 20071010, end: 20071010

REACTIONS (4)
  - CEREBRAL HAEMORRHAGE [None]
  - COMA [None]
  - ISCHAEMIA [None]
  - MYDRIASIS [None]
